FAERS Safety Report 7363577-2 (Version None)
Quarter: 2011Q1

REPORT INFORMATION
  Report Type: 
  Country: None (occurrence: None)
  Receive Date: 20110321
  Receipt Date: 20110317
  Transmission Date: 20110831
  Serious: Yes (Other)
  Sender: FDA-Public Use
  Company Number: SE-PFIZER INC-2011058760

PATIENT
  Age: 43 Year
  Sex: Male

DRUGS (1)
  1. XANOR [Suspect]
     Indication: ANXIETY
     Dosage: UNK
     Dates: start: 19860101

REACTIONS (6)
  - DIZZINESS [None]
  - PANIC DISORDER [None]
  - LEARNING DISORDER [None]
  - ANXIETY [None]
  - MEMORY IMPAIRMENT [None]
  - TREMOR [None]
